FAERS Safety Report 25415957 (Version 1)
Quarter: 2025Q2

REPORT INFORMATION
  Report Type: Spontaneous
  Country: ES (occurrence: ES)
  Receive Date: 20250610
  Receipt Date: 20250610
  Transmission Date: 20250717
  Serious: Yes (Hospitalization, Other)
  Sender: CHEPLAPHARM
  Company Number: None

PATIENT
  Age: 69 Year
  Sex: Female

DRUGS (18)
  1. OLANZAPINE [Interacting]
     Active Substance: OLANZAPINE
     Indication: Fibromyalgia
     Dosage: 2.5MG X2?DAILY DOSE: 5 MILLIGRAM
     Route: 048
     Dates: start: 20250310
  2. DOXORUBICIN [Suspect]
     Active Substance: DOXORUBICIN
     Indication: Non-Hodgkin^s lymphoma
  3. PREDNISONE [Suspect]
     Active Substance: PREDNISONE
     Indication: Non-Hodgkin^s lymphoma
  4. AMIODARONE HYDROCHLORIDE [Interacting]
     Active Substance: AMIODARONE HYDROCHLORIDE
     Indication: Atrial fibrillation
     Dosage: DAILY DOSE: 200 MILLIGRAM
     Route: 048
     Dates: start: 20250313, end: 20250320
  5. AMIODARONE HYDROCHLORIDE [Interacting]
     Active Substance: AMIODARONE HYDROCHLORIDE
     Indication: Atrial fibrillation
     Dates: start: 20250315
  6. ALPRAZOLAM [Interacting]
     Active Substance: ALPRAZOLAM
     Indication: Fibromyalgia
     Dosage: 0.5MG AND 1MG?DAILY DOSE: 1 MILLIGRAM
     Route: 048
     Dates: start: 20250310
  7. DULOXETINE HYDROCHLORIDE [Interacting]
     Active Substance: DULOXETINE HYDROCHLORIDE
     Indication: Fibromyalgia
     Dosage: DAILY DOSE: 120 MILLIGRAM
     Route: 048
     Dates: start: 20250310
  8. Calcium;Vitamin d3 [Concomitant]
  9. CICLOPIROX [Concomitant]
     Active Substance: CICLOPIROX
  10. CALCIFEDIOL [Concomitant]
     Active Substance: CALCIFEDIOL
  11. ACETAMINOPHEN [Concomitant]
     Active Substance: ACETAMINOPHEN
  12. Sensedol [Concomitant]
  13. SIMVASTATIN [Concomitant]
     Active Substance: SIMVASTATIN
  14. Vagirux [Concomitant]
  15. ZALDIAR [Concomitant]
     Active Substance: ACETAMINOPHEN\TRAMADOL HYDROCHLORIDE
  16. RITUXIMAB [Concomitant]
     Active Substance: RITUXIMAB
     Indication: Non-Hodgkin^s lymphoma
  17. CYCLOPHOSPHAMIDE [Concomitant]
     Active Substance: CYCLOPHOSPHAMIDE
     Indication: Non-Hodgkin^s lymphoma
  18. VINCRISTINE [Concomitant]
     Active Substance: VINCRISTINE
     Indication: Non-Hodgkin^s lymphoma

REACTIONS (10)
  - Somnolence [Recovered/Resolved]
  - Tuberculosis [Unknown]
  - Pericarditis [Unknown]
  - Atrial fibrillation [Unknown]
  - Pleural effusion [Unknown]
  - Toxic encephalopathy [Unknown]
  - Pyrexia [Unknown]
  - Drug interaction [Unknown]
  - Off label use [Unknown]
  - Off label use [Recovered/Resolved]

NARRATIVE: CASE EVENT DATE: 20250310
